FAERS Safety Report 4352729-1 (Version None)
Quarter: 2004Q2

REPORT INFORMATION
  Report Type: 
  Country: None (occurrence: None)
  Receive Date: 20040429
  Receipt Date: 20040419
  Transmission Date: 20050107
  Serious: Yes (Hospitalization)
  Sender: FDA-Public Use
  Company Number: 04P-163-0257988-00

PATIENT
  Age: 61 Year
  Sex: Female
  Weight: 83.9154 kg

DRUGS (2)
  1. HUMIRA [Suspect]
     Indication: RHEUMATOID ARTHRITIS
     Dosage: 40 MG, 1 IN 1 WK, SUBCUTANEOUS
     Route: 058
     Dates: start: 20030101
  2. CONJUGATED ESTROGEN [Concomitant]

REACTIONS (6)
  - CARDIAC FAILURE CONGESTIVE [None]
  - DRY SKIN [None]
  - NAUSEA [None]
  - PULMONARY OEDEMA [None]
  - PYREXIA [None]
  - RASH [None]
